FAERS Safety Report 19617234 (Version 1)
Quarter: 2021Q3

REPORT INFORMATION
  Report Type: Spontaneous
  Country: US (occurrence: US)
  Receive Date: 20210727
  Receipt Date: 20210727
  Transmission Date: 20211014
  Serious: No
  Sender: FDA-Public Use
  Company Number: US-ABBVIE-21K-163-3926946-00

PATIENT
  Age: 65 Year
  Sex: Female

DRUGS (1)
  1. SYNTHROID [Suspect]
     Active Substance: LEVOTHYROXINE SODIUM
     Indication: PRODUCT USED FOR UNKNOWN INDICATION
     Route: 048
     Dates: start: 2006

REACTIONS (3)
  - Hypoaesthesia oral [Recovering/Resolving]
  - Dysgeusia [Recovering/Resolving]
  - Sensory disturbance [Recovering/Resolving]

NARRATIVE: CASE EVENT DATE: 20210528
